FAERS Safety Report 7794906 (Version 3)
Quarter: 2014Q2

REPORT INFORMATION
  Report Type: Spontaneous
  Country: US (occurrence: US)
  Receive Date: 20110201
  Receipt Date: 20140403
  Transmission Date: 20141212
  Serious: Yes (Death, Hospitalization, Other)
  Sender: FDA-Public Use
  Company Number: US-B.I. PHARMACEUTICALS,INC./RIDGEFIELD-2011-BP-01779BP

PATIENT
  Sex: Male

DRUGS (18)
  1. PRADAXA [Suspect]
     Indication: ATRIAL FIBRILLATION
     Dosage: 300 MG
     Route: 048
     Dates: start: 20110106, end: 20110117
  2. CYTOXAN [Suspect]
     Indication: SCLERODERMA
     Route: 065
  3. SOLU-MEDROL [Suspect]
     Indication: SCLERODERMA
     Route: 065
  4. PROPAFENONE [Concomitant]
     Route: 065
  5. OXYGEN [Concomitant]
     Route: 065
  6. RYTHMOL [Concomitant]
     Route: 065
  7. DIGOXIN [Concomitant]
     Route: 065
  8. CARDIZEM [Concomitant]
     Route: 065
  9. TRAZODONE [Concomitant]
     Route: 065
  10. FISH OIL [Concomitant]
     Route: 065
  11. VITAMIN B12 [Concomitant]
     Route: 065
  12. ASPIRIN [Concomitant]
     Route: 065
  13. FLUOXETINE [Concomitant]
     Route: 065
  14. NEXIUM [Concomitant]
     Route: 065
  15. B COMPLEX [Concomitant]
     Route: 065
  16. BUSPIRONE [Concomitant]
     Route: 065
  17. DOMPERIDONE [Concomitant]
     Route: 065
  18. ZOCOR [Concomitant]
     Route: 065

REACTIONS (5)
  - Pulmonary alveolar haemorrhage [Fatal]
  - Acute respiratory failure [Fatal]
  - Atrial flutter [Unknown]
  - Renal failure acute [Unknown]
  - Deep vein thrombosis [Unknown]
